FAERS Safety Report 5523300-0 (Version None)
Quarter: 2007Q4

REPORT INFORMATION
  Report Type: 
  Country: None (occurrence: None)
  Receive Date: 20071116
  Receipt Date: 20071101
  Transmission Date: 20080405
  Serious: Yes (Other)
  Sender: FDA-Public Use
  Company Number: 2007S1011437

PATIENT
  Age: 62 Year
  Sex: Male
  Weight: 66.2252 kg

DRUGS (6)
  1. LISINOPRIL [Suspect]
     Indication: HYPERTENSION
     Dosage: 5 MG; X1; ORAL
     Route: 048
     Dates: start: 20051203, end: 20051204
  2. ALLOPURINOL [Concomitant]
  3. BECLOMETASONE [Concomitant]
  4. DILTIAZEM HYDROCHLORIDE [Concomitant]
  5. DOXAZOSIN MESYLATE [Concomitant]
  6. ALBUTEROL [Concomitant]

REACTIONS (4)
  - BLISTER [None]
  - FACE OEDEMA [None]
  - OEDEMA PERIPHERAL [None]
  - RASH GENERALISED [None]
